FAERS Safety Report 9109888 (Version 2)
Quarter: 2013Q2

REPORT INFORMATION
  Report Type: Spontaneous
  Country: IT (occurrence: IT)
  Receive Date: 20130222
  Receipt Date: 20130404
  Transmission Date: 20140414
  Serious: Yes (Hospitalization)
  Sender: FDA-Public Use
  Company Number: IT-BRISTOL-MYERS SQUIBB COMPANY-17387812

PATIENT
  Age: 84 Year
  Sex: Male

DRUGS (5)
  1. COUMADIN TABS 5 MG [Suspect]
     Indication: ATRIAL FIBRILLATION
     Route: 048
     Dates: start: 20120119, end: 20130214
  2. LASIX [Concomitant]
     Dosage: TAB
  3. CALCIUM [Concomitant]
  4. ZYLORIC [Concomitant]
     Dosage: TAB
  5. TAREG [Concomitant]
     Dosage: TAB

REACTIONS (3)
  - Cerebral haematoma [Recovering/Resolving]
  - Head injury [Recovering/Resolving]
  - Fall [Recovering/Resolving]
